FAERS Safety Report 17369228 (Version 1)
Quarter: 2020Q1

REPORT INFORMATION
  Report Type: Spontaneous
  Country: BR (occurrence: BR)
  Receive Date: 20200204
  Receipt Date: 20200204
  Transmission Date: 20200409
  Serious: Yes (Other)
  Sender: FDA-Public Use
  Company Number: BR-ALLERGAN-2004121US

PATIENT
  Sex: Male

DRUGS (1)
  1. ATROPINA 0.5% [Suspect]
     Active Substance: ATROPINE SULFATE
     Indication: SALIVARY HYPERSECRETION
     Dosage: 10 GTT, QPM
     Route: 060

REACTIONS (5)
  - Irritability [Unknown]
  - Off label use [Unknown]
  - Apnoeic attack [Recovered/Resolved]
  - Malaise [Unknown]
  - Rapid eye movement sleep behaviour disorder [Unknown]

NARRATIVE: CASE EVENT DATE: 20200127
